FAERS Safety Report 19444681 (Version 1)
Quarter: 2021Q2

REPORT INFORMATION
  Report Type: Spontaneous
  Country: US (occurrence: US)
  Receive Date: 20210621
  Receipt Date: 20210621
  Transmission Date: 20210717
  Serious: Yes (Other)
  Sender: FDA-Public Use
  Company Number: US-MYLANLABS-2021M1036640

PATIENT
  Age: 69 Year
  Sex: Male

DRUGS (15)
  1. LAMOTRIGINE. [Concomitant]
     Active Substance: LAMOTRIGINE
     Indication: BIPOLAR I DISORDER
     Dosage: 200 MILLIGRAM, QD
     Route: 065
  2. CARBIDOPA/LEVODOPA [Concomitant]
     Active Substance: CARBIDOPA\LEVODOPA
     Indication: PRODUCT USED FOR UNKNOWN INDICATION
     Dosage: UNK UNK, BID
     Route: 065
  3. LAMOTRIGINE. [Concomitant]
     Active Substance: LAMOTRIGINE
     Dosage: 300 MILLIGRAM, QD
     Route: 065
  4. FLUOXETINE [Suspect]
     Active Substance: FLUOXETINE HYDROCHLORIDE
     Indication: AFFECTIVE DISORDER
     Dosage: 40 MILLIGRAM, QD
     Route: 065
  5. PRAMIPEXOLE. [Suspect]
     Active Substance: PRAMIPEXOLE
     Indication: RESTLESS LEGS SYNDROME
     Dosage: 0.375 MILLIGRAM, QD
     Route: 065
  6. GABAPENTIN. [Suspect]
     Active Substance: GABAPENTIN
     Indication: SLEEP DISORDER
     Dosage: 800 MILLIGRAM, AM, IN THE MORNING
     Route: 065
  7. GABAPENTIN. [Suspect]
     Active Substance: GABAPENTIN
     Dosage: 3200 MILLIGRAM, PM, AT BEDTIME
     Route: 065
  8. TRAZODONE [Suspect]
     Active Substance: TRAZODONE HYDROCHLORIDE
     Indication: ANTIDEPRESSANT THERAPY
     Dosage: 200 MILLIGRAM, PM, AT BEDTIME
     Route: 065
  9. TEMAZEPAM. [Suspect]
     Active Substance: TEMAZEPAM
     Indication: INSOMNIA
     Dosage: 15?30MG AS NEEDED
     Route: 065
  10. GABAPENTIN. [Suspect]
     Active Substance: GABAPENTIN
     Dosage: 1600 MILLIGRAM, PM, AT BEDTIME
     Route: 065
  11. OLANZAPINE. [Suspect]
     Active Substance: OLANZAPINE
     Indication: AFFECTIVE DISORDER
     Dosage: UNK
     Route: 065
  12. PRAMIPEXOLE. [Suspect]
     Active Substance: PRAMIPEXOLE
     Dosage: UNK, DOSE INCREASED BY OWN
     Route: 065
  13. QUETIAPINE. [Suspect]
     Active Substance: QUETIAPINE
     Indication: AFFECTIVE DISORDER
     Dosage: UNK
     Route: 065
  14. CODEINE [Concomitant]
     Active Substance: CODEINE
     Indication: RESTLESS LEGS SYNDROME
     Dosage: 30 MILLIGRAM, PM, AT BEDTIME
     Route: 065
  15. DIVALPROEX [Concomitant]
     Active Substance: DIVALPROEX SODIUM
     Indication: AFFECTIVE DISORDER
     Dosage: 1500 MILLIGRAM
     Route: 065

REACTIONS (6)
  - Oedema peripheral [Unknown]
  - Mania [Unknown]
  - Restless legs syndrome [Unknown]
  - Condition aggravated [Unknown]
  - Drug ineffective [Unknown]
  - Intentional product misuse [Unknown]
